FAERS Safety Report 10208633 (Version 1)
Quarter: 2014Q2

REPORT INFORMATION
  Report Type: Spontaneous
  Country: US (occurrence: None)
  Receive Date: 20140529
  Receipt Date: 20140529
  Transmission Date: 20141212
  Serious: Yes (Other)
  Sender: FDA-Public Use
  Company Number: None

PATIENT
  Age: 58 Year
  Sex: Male
  Weight: 86.64 kg

DRUGS (1)
  1. OXYCODONE [Suspect]
     Indication: PAIN
     Dosage: 20MG/CC - 1 ML Q 4HR
     Dates: start: 20140312, end: 20140412

REACTIONS (1)
  - Drug effect incomplete [None]
